FAERS Safety Report 15235995 (Version 3)
Quarter: 2018Q3

REPORT INFORMATION
  Report Type: Spontaneous
  Country: US (occurrence: US)
  Receive Date: 20180803
  Receipt Date: 20180830
  Transmission Date: 20181010
  Serious: No
  Sender: FDA-Public Use
  Company Number: US-009507513-1808USA000452

PATIENT
  Age: 23 Year
  Sex: Female
  Weight: 131.7 kg

DRUGS (2)
  1. NEXPLANON [Suspect]
     Active Substance: ETONOGESTREL
     Indication: CONTRACEPTION
     Dosage: 1 ROD (EVERY THREE YEARS) IN THE LEFT ARM
     Route: 059
     Dates: start: 2016, end: 20180726
  2. NEXPLANON [Suspect]
     Active Substance: ETONOGESTREL
     Dosage: 1 IMPLANT
     Route: 059
     Dates: start: 20180726

REACTIONS (4)
  - Duodenal switch [Recovered/Resolved]
  - Pain in extremity [Recovered/Resolved]
  - Medical device site pain [Recovered/Resolved]
  - Device breakage [Recovered/Resolved]

NARRATIVE: CASE EVENT DATE: 20180402
